FAERS Safety Report 25204636 (Version 3)
Quarter: 2025Q4

REPORT INFORMATION
  Report Type: Spontaneous
  Country: EU (occurrence: EU)
  Receive Date: 20250416
  Receipt Date: 20251216
  Transmission Date: 20260117
  Serious: Yes (Other)
  Sender: ELI LILLY AND COMPANY
  Company Number: EU-ELI_LILLY_AND_COMPANY-DE202504005573

PATIENT
  Age: 72 Year
  Sex: Female

DRUGS (3)
  1. TERIPARATIDE [Suspect]
     Active Substance: TERIPARATIDE
     Indication: Osteoporosis
     Dosage: UNK, UNKNOWN
     Route: 065
  2. ENBREL [Concomitant]
     Active Substance: ETANERCEPT
     Indication: Product used for unknown indication
     Dosage: UNK, UNKNOWN
     Route: 065
  3. ACTONEL [Concomitant]
     Active Substance: RISEDRONATE SODIUM
     Indication: Product used for unknown indication
     Dosage: UNK, UNKNOWN
     Route: 065

REACTIONS (12)
  - Cardiovascular insufficiency [Unknown]
  - Urinary incontinence [Unknown]
  - Micturition urgency [Unknown]
  - Haemorrhoids [Unknown]
  - Diaphragmatic hernia [Unknown]
  - Fatigue [Unknown]
  - Dizziness [Unknown]
  - Fractured sacrum [Unknown]
  - Pain in extremity [Unknown]
  - Hypercalcaemia [Recovering/Resolving]
  - Nausea [Unknown]
  - Hyperuricaemia [Unknown]
